FAERS Safety Report 7820129-5 (Version None)
Quarter: 2011Q4

REPORT INFORMATION
  Report Type: 
  Country: None (occurrence: None)
  Receive Date: 20111018
  Receipt Date: 20111012
  Transmission Date: 20120403
  Serious: Yes (Hospitalization)
  Sender: FDA-Public Use
  Company Number: PHHY2011JP90802

PATIENT
  Age: 34 Year
  Sex: Male
  Weight: 65.4 kg

DRUGS (1)
  1. TEGRETOL [Suspect]
     Dosage: UNK UKN, UNK

REACTIONS (1)
  - FABRY'S DISEASE [None]
